FAERS Safety Report 13521237 (Version 1)
Quarter: 2017Q2

REPORT INFORMATION
  Report Type: Spontaneous
  Country: FR (occurrence: FR)
  Receive Date: 20170508
  Receipt Date: 20170508
  Transmission Date: 20170830
  Serious: Yes (Hospitalization)
  Sender: FDA-Public Use
  Company Number: FR-MUNDIPHARMA DS AND PHARMACOVIGILANCE-GBR-2017-0045055

PATIENT
  Age: 44 Year
  Sex: Male

DRUGS (10)
  1. TRAMADOL. [Concomitant]
     Active Substance: TRAMADOL
     Dosage: 50 MG, TID [1-1-1]
  2. CANNABIS [Suspect]
     Active Substance: CANNABIS SATIVA SUBSP. INDICA TOP
     Indication: PRODUCT USED FOR UNKNOWN INDICATION
     Route: 055
  3. NICORETTE [Concomitant]
     Active Substance: NICOTINE
     Indication: TOBACCO USER
     Dosage: 2 PATCH, DAILY [2 PATCHS FOR 24H]
  4. ALCOHOL. [Suspect]
     Active Substance: ALCOHOL
     Indication: PRODUCT USED FOR UNKNOWN INDICATION
     Dosage: 4 L TIMES A DAY
     Route: 048
  5. INNOVAIR [Concomitant]
     Active Substance: BECLOMETHASONE DIPROPIONATE\FORMOTEROL
     Dosage: 1 PUFF, BID [MORNING AND EVENING]
  6. OXYCONTIN [Suspect]
     Active Substance: OXYCODONE HYDROCHLORIDE
     Indication: PRODUCT USED FOR UNKNOWN INDICATION
     Dosage: UNK
     Route: 048
     Dates: start: 20170129, end: 20170222
  7. LYRICA [Concomitant]
     Active Substance: PREGABALIN
     Dosage: 200 MG, TID [1-1-1]
  8. SEROPLEX [Concomitant]
     Active Substance: ESCITALOPRAM OXALATE
     Indication: DEPRESSION
     Dosage: 1 DF, NOCTE
  9. NICOTIANA TABACUM [Suspect]
     Active Substance: TOBACCO LEAF
     Indication: PRODUCT USED FOR UNKNOWN INDICATION
     Route: 055
  10. APRANAX                            /00256201/ [Concomitant]
     Active Substance: NAPROXEN
     Dosage: 550 MG, BID [MORNING AND EVENING]

REACTIONS (4)
  - Chest pain [Unknown]
  - Drug use disorder [Unknown]
  - Pleurisy [Recovering/Resolving]
  - Angina pectoris [Unknown]

NARRATIVE: CASE EVENT DATE: 201701
